FAERS Safety Report 9410888 (Version 1)
Quarter: 2013Q3

REPORT INFORMATION
  Report Type: Spontaneous
  Country: US (occurrence: US)
  Receive Date: 20130719
  Receipt Date: 20130719
  Transmission Date: 20140515
  Serious: Yes (Other)
  Sender: FDA-Public Use
  Company Number: US-ABBOTT-13P-163-1119076-00

PATIENT
  Sex: Male
  Weight: 74.91 kg

DRUGS (7)
  1. LUPRON DEPOT [Suspect]
     Indication: PROSTATE CANCER
     Dates: start: 20130411
  2. NORCO [Concomitant]
     Indication: PRODUCT USED FOR UNKNOWN INDICATION
  3. NEURONTIN [Concomitant]
     Indication: PRODUCT USED FOR UNKNOWN INDICATION
  4. ATENOLOL [Concomitant]
     Indication: PRODUCT USED FOR UNKNOWN INDICATION
  5. KEPPRA [Concomitant]
     Indication: PRODUCT USED FOR UNKNOWN INDICATION
  6. METHADONE [Concomitant]
     Indication: PRODUCT USED FOR UNKNOWN INDICATION
  7. OPANA [Concomitant]
     Indication: PRODUCT USED FOR UNKNOWN INDICATION

REACTIONS (4)
  - Seroma [Recovering/Resolving]
  - Injection site nodule [Recovering/Resolving]
  - Injection site abscess [Recovering/Resolving]
  - Staphylococcal infection [Recovering/Resolving]
